FAERS Safety Report 7399962-2 (Version None)
Quarter: 2011Q2

REPORT INFORMATION
  Report Type: 
  Country: None (occurrence: None)
  Receive Date: 20110407
  Receipt Date: 20110325
  Transmission Date: 20111010
  Serious: Yes (Other)
  Sender: FDA-Public Use
  Company Number: DE-JNJFOC-20110207656

PATIENT
  Age: 74 Year
  Sex: Male

DRUGS (5)
  1. ALLOPURINOL [Concomitant]
     Route: 048
  2. ERGENYL CHRONO [Concomitant]
     Route: 048
  3. METOPROLOL [Concomitant]
     Route: 048
  4. LOPERAMIDE [Suspect]
     Indication: DIARRHOEA
     Route: 048
  5. MARCUMAR [Interacting]
     Indication: MITRAL VALVE REPLACEMENT
     Route: 048

REACTIONS (3)
  - COAGULOPATHY [None]
  - INTERNATIONAL NORMALISED RATIO INCREASED [None]
  - DRUG INTERACTION [None]
